FAERS Safety Report 9283028 (Version 1)
Quarter: 2013Q2

REPORT INFORMATION
  Report Type: Spontaneous
  Country: US (occurrence: US)
  Receive Date: 20130510
  Receipt Date: 20130510
  Transmission Date: 20140414
  Serious: No
  Sender: FDA-Public Use
  Company Number: US-GLAXOSMITHKLINE-A0974205A

PATIENT
  Sex: Female

DRUGS (15)
  1. TYKERB [Suspect]
     Indication: BREAST CANCER
     Dosage: 1500MG PER DAY
     Route: 048
  2. FEMARA [Concomitant]
  3. LASIX [Concomitant]
  4. ASPIRIN [Concomitant]
  5. PRILOSEC [Concomitant]
  6. TYLENOL [Concomitant]
  7. VITAMIN B6 [Concomitant]
  8. NORVASC [Concomitant]
  9. ACTOS [Concomitant]
  10. METFORMIN [Concomitant]
  11. TENORMIN [Concomitant]
  12. IMDUR [Concomitant]
  13. ATIVAN [Concomitant]
  14. STOOL SOFTENER [Concomitant]
  15. CALCIUM [Concomitant]

REACTIONS (2)
  - Diarrhoea [Unknown]
  - Rash [Unknown]
